FAERS Safety Report 6825523-7 (Version None)
Quarter: 2010Q3

REPORT INFORMATION
  Report Type: 
  Country: None (occurrence: None)
  Receive Date: 20100708
  Receipt Date: 20061122
  Transmission Date: 20110219
  Serious: No
  Sender: FDA-Public Use
  Company Number: US-PFIZER INC-2006147696

PATIENT
  Sex: Female
  Weight: 73.94 kg

DRUGS (13)
  1. CHANTIX [Suspect]
     Dates: start: 20061001
  2. FUROSEMIDE [Concomitant]
  3. POTASSIUM CHLORIDE [Concomitant]
  4. DIGOXIN [Concomitant]
  5. AMARYL [Concomitant]
  6. SYNTHROID [Concomitant]
  7. NEURONTIN [Concomitant]
  8. MULTI-VITAMINS [Concomitant]
  9. CINNAMON [Concomitant]
  10. MULTIVITAMIN [Concomitant]
     Indication: MACULAR DEGENERATION
  11. FLAXSEED OIL [Concomitant]
  12. NIACIN [Concomitant]
  13. MAGNESIUM [Concomitant]

REACTIONS (1)
  - DYSPEPSIA [None]
